FAERS Safety Report 6375481-7 (Version None)
Quarter: 2009Q3

REPORT INFORMATION
  Report Type: 
  Country: None (occurrence: None)
  Receive Date: 20090917
  Receipt Date: 20090917
  Transmission Date: 20100115
  Serious: Yes (Life-Threatening)
  Sender: FDA-Public Use
  Company Number: None

PATIENT
  Age: 43 Year
  Sex: Female
  Weight: 54.5224 kg

DRUGS (2)
  1. METHADONE HYDROCHLORIDE [Suspect]
     Indication: DRUG DEPENDENCE
     Dosage: 250 MG DAILY PO
     Route: 048
     Dates: start: 20060705, end: 20070825
  2. METHADONE HYDROCHLORIDE [Suspect]
     Indication: PAIN
     Dosage: 250 MG DAILY PO
     Route: 048
     Dates: start: 20060705, end: 20070825

REACTIONS (4)
  - CARDIAC DEATH [None]
  - CARDIOMYOPATHY [None]
  - GRAND MAL CONVULSION [None]
  - TORSADE DE POINTES [None]
